FAERS Safety Report 21905360 (Version 1)
Quarter: 2023Q1

REPORT INFORMATION
  Report Type: Spontaneous
  Country: US (occurrence: US)
  Receive Date: 20230124
  Receipt Date: 20230124
  Transmission Date: 20230418
  Serious: No
  Sender: FDA-Public Use
  Company Number: US-BRISTOL-MYERS SQUIBB COMPANY-2023-011088

PATIENT
  Age: 67 Year
  Sex: Male
  Weight: 86.18 kg

DRUGS (1)
  1. REVLIMID [Suspect]
     Active Substance: LENALIDOMIDE
     Indication: Plasma cell myeloma
     Dosage: FREQUENCY: D 1-14 Q 21 DAYS
     Route: 048
     Dates: start: 20230117

REACTIONS (4)
  - Oedema peripheral [Recovered/Resolved]
  - Rash macular [Recovered/Resolved]
  - Product dose omission issue [Unknown]
  - Off label use [Unknown]

NARRATIVE: CASE EVENT DATE: 20230120
